FAERS Safety Report 6080430-5 (Version None)
Quarter: 2009Q1

REPORT INFORMATION
  Report Type: 
  Country: None (occurrence: None)
  Receive Date: 20090217
  Receipt Date: 20090205
  Transmission Date: 20090719
  Serious: Yes (Disabling)
  Sender: FDA-Public Use
  Company Number: PHHY2009GB04341

PATIENT
  Age: 34 Year
  Sex: Female
  Weight: 60 kg

DRUGS (4)
  1. DICLOFENAC [Suspect]
  2. ACETAMINOPHEN [Suspect]
     Dosage: 1MG
     Route: 042
  3. CYCLIZINE [Concomitant]
     Dosage: 50MG
     Route: 042
  4. ONDANSETRON [Concomitant]
     Dosage: 4MG
     Route: 042

REACTIONS (5)
  - DRUG INTERACTION [None]
  - INJECTION SITE OEDEMA [None]
  - INJECTION SITE PAIN [None]
  - INJECTION SITE REACTION [None]
  - INJECTION SITE STREAKING [None]
